FAERS Safety Report 8305485-6 (Version None)
Quarter: 2012Q2

REPORT INFORMATION
  Report Type: 
  Country: None (occurrence: None)
  Receive Date: 20120423
  Receipt Date: 20120413
  Transmission Date: 20120825
  Serious: Yes (Hospitalization)
  Sender: FDA-Public Use
  Company Number: US-GLAXOSMITHKLINE-A0961421A

PATIENT
  Age: 23 Year
  Sex: Female
  Weight: 125 kg

DRUGS (11)
  1. LAMICTAL [Suspect]
     Indication: CONVULSION
     Dosage: 200MG TWICE PER DAY
     Route: 048
  2. SUDAFED 12 HOUR [Concomitant]
  3. ACTOS [Concomitant]
     Dosage: 30MG PER DAY
  4. NASONEX [Concomitant]
  5. XANAX [Concomitant]
  6. TRILIPIX [Concomitant]
  7. MIRALAX [Concomitant]
  8. VIMPAT [Suspect]
     Dosage: 100MG TWICE PER DAY
     Route: 048
  9. HYDROCHLOROTHIAZIDE [Concomitant]
  10. JANUMET [Concomitant]
     Dosage: 1TAB TWICE PER DAY
  11. MAXALT [Concomitant]
     Indication: HEADACHE

REACTIONS (11)
  - MENTAL IMPAIRMENT [None]
  - RESPIRATORY ARREST [None]
  - APHASIA [None]
  - BALANCE DISORDER [None]
  - CONVULSION [None]
  - SPEECH DISORDER [None]
  - GRAND MAL CONVULSION [None]
  - CONFUSIONAL STATE [None]
  - PRODUCT QUALITY ISSUE [None]
  - DRUG LEVEL DECREASED [None]
  - ANXIETY [None]
